FAERS Safety Report 5976414-5 (Version None)
Quarter: 2008Q4

REPORT INFORMATION
  Report Type: 
  Country: None (occurrence: None)
  Receive Date: 20081202
  Receipt Date: 20081120
  Transmission Date: 20090506
  Serious: Yes (Disabling)
  Sender: FDA-Public Use
  Company Number: US-ELI_LILLY_AND_COMPANY-US200811004927

PATIENT
  Age: 72 Year
  Sex: Female

DRUGS (2)
  1. EVISTA [Suspect]
     Dosage: 60 MG, UNKNOWN
     Route: 065
     Dates: start: 20040101
  2. MULTI-VITAMIN [Concomitant]
     Dosage: UNK, UNKNOWN
     Route: 065

REACTIONS (1)
  - ARTHROPATHY [None]
